FAERS Safety Report 16499444 (Version 2)
Quarter: 2019Q3

REPORT INFORMATION
  Report Type: Spontaneous
  Country: US (occurrence: US)
  Receive Date: 20190701
  Receipt Date: 20190819
  Transmission Date: 20191004
  Serious: No
  Sender: FDA-Public Use
  Company Number: US-SHIRE-US201920748

PATIENT
  Sex: Male

DRUGS (3)
  1. HIZENTRA [Concomitant]
     Active Substance: HUMAN IMMUNOGLOBULIN G
     Indication: PRODUCT USED FOR UNKNOWN INDICATION
  2. HYQVIA [Suspect]
     Active Substance: HUMAN IMMUNOGLOBULIN G\HYALURONIDASE RECOMBINANT HUMAN
     Indication: HYPOGAMMAGLOBULINAEMIA
     Dosage: 840 MILLILITER, EVERY 3 WK
     Route: 058
  3. HYQVIA [Suspect]
     Active Substance: HUMAN IMMUNOGLOBULIN G\HYALURONIDASE RECOMBINANT HUMAN
     Indication: PRIMARY IMMUNODEFICIENCY SYNDROME

REACTIONS (6)
  - Infusion related reaction [Unknown]
  - Infusion site swelling [Unknown]
  - Device difficult to use [Unknown]
  - Weight increased [Unknown]
  - Infusion site erythema [Recovered/Resolved]
  - Infusion site pain [Unknown]
